FAERS Safety Report 10154614 (Version 3)
Quarter: 2014Q2

REPORT INFORMATION
  Report Type: Spontaneous
  Country: CH (occurrence: CH)
  Receive Date: 20140506
  Receipt Date: 20140616
  Transmission Date: 20141212
  Serious: Yes (Hospitalization, Other)
  Sender: FDA-Public Use
  Company Number: CH-ASTELLAS-2014EU003531

PATIENT
  Sex: Male

DRUGS (2)
  1. XTANDI [Suspect]
     Indication: PRODUCT USED FOR UNKNOWN INDICATION
     Route: 048
     Dates: start: 20131112, end: 201401
  2. XTANDI [Suspect]
     Route: 048
     Dates: start: 201401, end: 20140127

REACTIONS (5)
  - Vertigo [Unknown]
  - Fatigue [Recovering/Resolving]
  - Atrioventricular block complete [Unknown]
  - Metastases to meninges [Unknown]
  - Infection [Unknown]
